FAERS Safety Report 5775022-9 (Version None)
Quarter: 2008Q2

REPORT INFORMATION
  Report Type: 
  Country: None (occurrence: None)
  Receive Date: 20080617
  Receipt Date: 20080610
  Transmission Date: 20081010
  Serious: Yes (Other)
  Sender: FDA-Public Use
  Company Number: US-ABBOTT-08P-163-0448027-00

PATIENT
  Age: 37 Year
  Sex: Male
  Weight: 78.088 kg

DRUGS (20)
  1. RITONAVIR SOFT GELATIN CAPSULES [Suspect]
     Indication: HIV INFECTION
     Dates: start: 20080303
  2. TRUVADA [Suspect]
     Indication: HIV INFECTION
     Dates: start: 20080303
  3. TRUVADA [Suspect]
  4. ATAZANAVIR [Suspect]
     Indication: HIV INFECTION
     Dates: start: 20080303
  5. JUICE PLUS [Concomitant]
     Indication: DRUG USE FOR UNKNOWN INDICATION
     Dates: start: 20070701
  6. MULTI-VITAMIN [Concomitant]
     Indication: DRUG USE FOR UNKNOWN INDICATION
     Dates: start: 19970101
  7. NAPROXEN SODIUM [Concomitant]
     Indication: DRUG USE FOR UNKNOWN INDICATION
     Dates: start: 20070501
  8. ADVIL [Concomitant]
     Indication: DRUG USE FOR UNKNOWN INDICATION
     Dates: start: 19830101
  9. AMOXILIN [Concomitant]
     Indication: DRUG USE FOR UNKNOWN INDICATION
     Dates: start: 20080219, end: 20080219
  10. PETHIDINE HYDROCHLORIDE [Concomitant]
     Indication: ORAL PAIN
     Dates: start: 20080328, end: 20080329
  11. IBUROFEN [Concomitant]
     Indication: DRUG USE FOR UNKNOWN INDICATION
     Dates: start: 20080317, end: 20080317
  12. FENTANYL [Concomitant]
     Indication: WISDOM TEETH REMOVAL
     Route: 042
     Dates: start: 20080221, end: 20080221
  13. MIDAZOLAM HYDROCHLORIDE [Concomitant]
     Indication: WISDOM TEETH REMOVAL
     Route: 042
     Dates: start: 20080221, end: 20080221
  14. KETAMINE HCL [Concomitant]
     Indication: WISDOM TEETH REMOVAL
     Route: 042
     Dates: start: 20080221, end: 20080221
  15. DEXAMETHASONE TAB [Concomitant]
     Indication: WISDOM TEETH REMOVAL
     Route: 042
     Dates: start: 20080221, end: 20080221
  16. PROPOFOL [Concomitant]
     Indication: WISDOM TEETH REMOVAL
     Route: 042
     Dates: start: 20080221, end: 20080221
  17. GLYCOPYRRONIUM BROMIDE [Concomitant]
     Indication: WISDOM TEETH REMOVAL
     Route: 042
     Dates: start: 20080221, end: 20080221
  18. XYLOCAINE W/ EPINEPHRINE [Concomitant]
     Indication: DRUG USE FOR UNKNOWN INDICATION
     Dates: start: 20080221, end: 20080221
  19. OXYCODONE HCL [Concomitant]
     Indication: DRUG USE FOR UNKNOWN INDICATION
     Dates: start: 20080331, end: 20080331
  20. NOVOCAINE [Concomitant]
     Indication: DRUG USE FOR UNKNOWN INDICATION
     Dates: start: 20080327, end: 20080327

REACTIONS (1)
  - HYPERBILIRUBINAEMIA [None]
